FAERS Safety Report 9955035 (Version 1)
Quarter: 2014Q1

REPORT INFORMATION
  Report Type: Report from Study
  Country: US (occurrence: US)
  Receive Date: 20140304
  Receipt Date: 20140304
  Transmission Date: 20141002
  Serious: No
  Sender: FDA-Public Use
  Company Number: US-ABBVIE-13P-163-1074523-00

PATIENT
  Age: 47 Year
  Sex: Female

DRUGS (7)
  1. HUMIRA [Suspect]
     Indication: RHEUMATOID ARTHRITIS
     Dates: start: 20130405
  2. METHOTREXATE [Concomitant]
     Indication: RHEUMATOID ARTHRITIS
     Route: 050
  3. CARDIVOL [Concomitant]
     Indication: BLOOD PRESSURE
  4. VITAMIN D AND ANALOGUES [Concomitant]
     Indication: VITAMIN SUPPLEMENTATION
     Dosage: 1000 IU DAILY SUPPLEMENT
  5. CYMBALTA [Concomitant]
     Indication: ANXIETY
     Dosage: 60 MG DAILY
  6. FOLIC ACID [Concomitant]
     Indication: PRODUCT USED FOR UNKNOWN INDICATION
  7. ZOFRAN [Concomitant]
     Indication: NAUSEA
     Dosage: AS NEEDED

REACTIONS (2)
  - Dysgeusia [Recovered/Resolved]
  - Injection site pain [Recovered/Resolved]
